FAERS Safety Report 7523695-2 (Version None)
Quarter: 2011Q2

REPORT INFORMATION
  Report Type: 
  Country: None (occurrence: None)
  Receive Date: 20110603
  Receipt Date: 20110528
  Transmission Date: 20111010
  Serious: Yes (Hospitalization, Other)
  Sender: FDA-Public Use
  Company Number: US-US-EMD SERONO, INC.-233634J09USA

PATIENT
  Sex: Female
  Weight: 105 kg

DRUGS (11)
  1. VITAMIN D [Concomitant]
     Indication: MULTIPLE SCLEROSIS
     Route: 065
  2. METOPROLOL TARTRATE [Concomitant]
     Indication: HYPERTENSION
     Route: 065
  3. SIMVASTATIN [Concomitant]
     Indication: BLOOD CHOLESTEROL INCREASED
     Route: 065
  4. NAPROXEN (ALEVE) [Concomitant]
     Indication: PREMEDICATION
  5. REBIF [Suspect]
     Route: 058
     Dates: start: 20110523
  6. REBIF [Suspect]
     Route: 058
     Dates: start: 20100301, end: 20100601
  7. LEVOTHYROXINE SODIUM [Concomitant]
     Indication: HYPOTHYROIDISM
     Route: 065
  8. CALCIUM CARBONATE [Concomitant]
     Indication: ROUTINE HEALTH MAINTENANCE
     Route: 065
  9. REBIF [Suspect]
     Route: 058
     Dates: start: 20091001, end: 20100201
  10. REBIF [Suspect]
     Indication: MULTIPLE SCLEROSIS
     Route: 058
     Dates: start: 20060220, end: 20090101
  11. BENICAR HCT [Concomitant]
     Indication: HYPERTENSION
     Route: 065

REACTIONS (4)
  - BREAST CANCER [None]
  - SQUAMOUS CELL CARCINOMA [None]
  - CELLULITIS [None]
  - MALAISE [None]
